FAERS Safety Report 16264139 (Version 4)
Quarter: 2020Q1

REPORT INFORMATION
  Report Type: Spontaneous
  Country: US (occurrence: US)
  Receive Date: 20190502
  Receipt Date: 20200110
  Transmission Date: 20200409
  Serious: Yes (Life-Threatening, Hospitalization, Other)
  Sender: FDA-Public Use
  Company Number: US-GLENMARK PHARMACEUTICALS-2019GMK040991

PATIENT
  Age: 44 Year
  Sex: Female

DRUGS (8)
  1. POLYETHYLENE GLYCOL [Concomitant]
     Active Substance: POLYETHYLENE GLYCOLS
     Indication: PRODUCT USED FOR UNKNOWN INDICATION
     Dosage: 17 G, OD
     Route: 048
  2. CYCLOBENZAPRINE. [Concomitant]
     Active Substance: CYCLOBENZAPRINE
     Indication: PRODUCT USED FOR UNKNOWN INDICATION
     Dosage: 10 MG, PRN (THREE TIMES A DAY, AS NECESSARY)
     Route: 048
  3. DIAZEPAM. [Concomitant]
     Active Substance: DIAZEPAM
     Indication: PRODUCT USED FOR UNKNOWN INDICATION
     Dosage: 5 MG, PRN (THREE TIMES A DAY, AC NECESSARY)
     Route: 048
  4. GABAPENTIN. [Suspect]
     Active Substance: GABAPENTIN
     Indication: LUMBAR SPINAL STENOSIS
     Dosage: 300 MG, TID
     Route: 048
  5. ONDANSETRON [Concomitant]
     Active Substance: ONDANSETRON
     Indication: PRODUCT USED FOR UNKNOWN INDICATION
     Dosage: 4 MG, PRN (EVERY 4 HOURS)
     Route: 048
  6. HYDROCODONE BITARTRATE AND ACETAMINOPHEN [Concomitant]
     Active Substance: ACETAMINOPHEN\HYDROCODONE BITARTRATE
     Indication: PRODUCT USED FOR UNKNOWN INDICATION
     Dosage: 1 DF, PRN (5/325 MG EVERY 4 HOURS)
     Route: 048
  7. DOCUSATE [Concomitant]
     Active Substance: DOCUSATE
     Indication: PRODUCT USED FOR UNKNOWN INDICATION
     Dosage: (100), OD
     Route: 048
  8. OXYCODONE W/PARACETAMOL [Concomitant]
     Active Substance: ACETAMINOPHEN\OXYCODONE HYDROCHLORIDE
     Indication: PRODUCT USED FOR UNKNOWN INDICATION
     Dosage: 1 DF, PRN (5/325 MG EVERY 4 HOURS )
     Route: 048

REACTIONS (16)
  - Mitral valve incompetence [Recovered/Resolved]
  - Mitral valve disease [Recovered/Resolved]
  - Hypotension [Unknown]
  - Anxiety [Unknown]
  - Sinus tachycardia [Recovered/Resolved]
  - Pulmonary hypertension [Recovered/Resolved]
  - Ventricular tachycardia [Not Recovered/Not Resolved]
  - Left ventricular hypertrophy [Recovered/Resolved]
  - Electrocardiogram T wave abnormal [Recovered/Resolved]
  - Ventricular arrhythmia [Unknown]
  - Cardiac failure [Recovered/Resolved]
  - Ventricular dysfunction [Recovered/Resolved]
  - Cardiomyopathy [Recovered/Resolved]
  - Tricuspid valve disease [Recovered/Resolved]
  - Cardiomegaly [Recovered/Resolved]
  - Atrial enlargement [Recovered/Resolved]
